FAERS Safety Report 11887131 (Version 2)
Quarter: 2016Q1

REPORT INFORMATION
  Report Type: Spontaneous
  Country: IT (occurrence: IT)
  Receive Date: 20160104
  Receipt Date: 20160127
  Transmission Date: 20160526
  Serious: Yes (Other)
  Sender: FDA-Public Use
  Company Number: IT-ABBVIE-16P-083-1530742-00

PATIENT
  Age: 6 Year
  Sex: Male

DRUGS (4)
  1. DEPAKIN [Suspect]
     Active Substance: VALPROATE SODIUM
     Route: 065
  2. DEPAKIN [Suspect]
     Active Substance: VALPROATE SODIUM
     Indication: EPILEPSY
     Route: 048
     Dates: start: 20151007, end: 20151007
  3. DEPAKIN [Suspect]
     Active Substance: VALPROATE SODIUM
     Route: 065
  4. DEPAKIN [Suspect]
     Active Substance: VALPROATE SODIUM
     Route: 065

REACTIONS (1)
  - Poisoning [Recovering/Resolving]

NARRATIVE: CASE EVENT DATE: 20151007
